FAERS Safety Report 7397039-3 (Version None)
Quarter: 2011Q2

REPORT INFORMATION
  Report Type: 
  Country: None (occurrence: None)
  Receive Date: 20110406
  Receipt Date: 20110330
  Transmission Date: 20111010
  Serious: Yes (Other)
  Sender: FDA-Public Use
  Company Number: B0698642A

PATIENT
  Sex: Female
  Weight: 96 kg

DRUGS (1)
  1. NIQUITIN CQ CLEAR 14MG [Suspect]
     Dosage: 14MG PER DAY
     Route: 062
     Dates: start: 20110201, end: 20110204

REACTIONS (18)
  - SCRATCH [None]
  - PRURITUS [None]
  - DISABILITY [None]
  - ANXIETY [None]
  - NERVOUSNESS [None]
  - DEPRESSION [None]
  - EMOTIONAL DISTRESS [None]
  - AGITATION [None]
  - AGGRESSION [None]
  - DYSPNOEA [None]
  - MEMORY IMPAIRMENT [None]
  - HEADACHE [None]
  - ERYTHEMA [None]
  - SCREAMING [None]
  - CRYING [None]
  - DEPRESSED MOOD [None]
  - HALLUCINATION [None]
  - FEAR [None]
